FAERS Safety Report 25045152 (Version 1)
Quarter: 2025Q1

REPORT INFORMATION
  Report Type: Spontaneous
  Country: CA (occurrence: CA)
  Receive Date: 20250306
  Receipt Date: 20250306
  Transmission Date: 20250409
  Serious: Yes (Death, Life-Threatening, Hospitalization, Disabling, Congenital Anomaly, Other)
  Sender: SANDOZ
  Company Number: CA-002147023-NVSC2023CA119843

PATIENT
  Age: 43 Year
  Sex: Female
  Weight: 96 kg

DRUGS (164)
  1. ACETAMINOPHEN [Suspect]
     Active Substance: ACETAMINOPHEN
     Indication: Product used for unknown indication
     Route: 065
  2. ADALIMUMAB [Suspect]
     Active Substance: ADALIMUMAB
     Route: 048
  3. ADALIMUMAB [Suspect]
     Active Substance: ADALIMUMAB
     Route: 058
  4. ADALIMUMAB [Suspect]
     Active Substance: ADALIMUMAB
     Indication: Product used for unknown indication
     Route: 058
  5. APREMILAST [Suspect]
     Active Substance: APREMILAST
     Indication: Product used for unknown indication
     Route: 065
  6. ACTEMRA [Suspect]
     Active Substance: TOCILIZUMAB
     Route: 042
  7. ACTEMRA [Suspect]
     Active Substance: TOCILIZUMAB
     Route: 048
  8. ACTEMRA [Suspect]
     Active Substance: TOCILIZUMAB
     Dosage: 2912.0 MG, QW
     Route: 042
  9. ACTEMRA [Suspect]
     Active Substance: TOCILIZUMAB
     Route: 042
  10. ACTEMRA [Suspect]
     Active Substance: TOCILIZUMAB
     Route: 058
  11. ACTEMRA [Suspect]
     Active Substance: TOCILIZUMAB
     Route: 042
  12. ACTEMRA [Suspect]
     Active Substance: TOCILIZUMAB
     Route: 058
  13. ACTEMRA [Suspect]
     Active Substance: TOCILIZUMAB
     Route: 042
  14. ACTEMRA [Suspect]
     Active Substance: TOCILIZUMAB
     Route: 058
  15. ACTEMRA [Suspect]
     Active Substance: TOCILIZUMAB
     Route: 042
  16. ACTEMRA [Suspect]
     Active Substance: TOCILIZUMAB
     Route: 042
  17. ACTEMRA [Suspect]
     Active Substance: TOCILIZUMAB
     Route: 058
  18. ACTEMRA [Suspect]
     Active Substance: TOCILIZUMAB
     Dosage: UNK UNK, QW
     Route: 042
  19. ACTEMRA [Suspect]
     Active Substance: TOCILIZUMAB
     Dosage: UNK UNK, QW
     Route: 058
  20. ACTEMRA [Suspect]
     Active Substance: TOCILIZUMAB
     Dosage: UNK, QW
     Route: 042
  21. ACTEMRA [Suspect]
     Active Substance: TOCILIZUMAB
     Route: 016
  22. ACTEMRA [Suspect]
     Active Substance: TOCILIZUMAB
     Route: 041
  23. ACTEMRA [Suspect]
     Active Substance: TOCILIZUMAB
     Route: 041
  24. ACTEMRA [Suspect]
     Active Substance: TOCILIZUMAB
     Route: 042
  25. ACTEMRA [Suspect]
     Active Substance: TOCILIZUMAB
     Route: 042
  26. ACTEMRA [Suspect]
     Active Substance: TOCILIZUMAB
     Route: 048
  27. ACTEMRA [Suspect]
     Active Substance: TOCILIZUMAB
     Route: 058
  28. ACTEMRA [Suspect]
     Active Substance: TOCILIZUMAB
     Route: 058
  29. ACTEMRA [Suspect]
     Active Substance: TOCILIZUMAB
     Indication: Rheumatoid arthritis
     Route: 061
  30. ACTEMRA [Suspect]
     Active Substance: TOCILIZUMAB
     Route: 041
  31. ACTEMRA [Suspect]
     Active Substance: TOCILIZUMAB
     Route: 059
  32. AMINOSALICYLIC ACID [Suspect]
     Active Substance: AMINOSALICYLIC ACID
     Indication: Product used for unknown indication
     Route: 065
  33. ATOMOXETINE HYDROCHLORIDE [Suspect]
     Active Substance: ATOMOXETINE HYDROCHLORIDE
     Indication: Product used for unknown indication
     Route: 065
  34. PREDNISONE [Suspect]
     Active Substance: PREDNISONE
     Route: 048
  35. PREDNISONE [Suspect]
     Active Substance: PREDNISONE
     Route: 048
  36. PREDNISONE [Suspect]
     Active Substance: PREDNISONE
     Route: 048
  37. PREDNISONE [Suspect]
     Active Substance: PREDNISONE
     Indication: Product used for unknown indication
     Route: 048
  38. ARAVA [Suspect]
     Active Substance: LEFLUNOMIDE
     Dosage: 10 MG, QD
     Route: 048
  39. ARAVA [Suspect]
     Active Substance: LEFLUNOMIDE
     Dosage: 20 MG, QD
     Route: 048
  40. ARAVA [Suspect]
     Active Substance: LEFLUNOMIDE
     Route: 048
  41. ARAVA [Suspect]
     Active Substance: LEFLUNOMIDE
     Route: 048
  42. ARAVA [Suspect]
     Active Substance: LEFLUNOMIDE
     Route: 065
  43. ARAVA [Suspect]
     Active Substance: LEFLUNOMIDE
     Indication: Product used for unknown indication
     Route: 048
  44. ASACOL [Suspect]
     Active Substance: MESALAMINE
     Indication: Crohn^s disease
     Route: 065
  45. BUTRANS [Suspect]
     Active Substance: BUPRENORPHINE
     Indication: Product used for unknown indication
     Route: 065
  46. CALCIUM CARBONATE [Suspect]
     Active Substance: CALCIUM CARBONATE
     Indication: Product used for unknown indication
     Route: 065
  47. CALCIUM CITRATE [Suspect]
     Active Substance: CALCIUM CITRATE
     Indication: Product used for unknown indication
     Route: 065
  48. CALCIUM GLUBIONATE [Suspect]
     Active Substance: CALCIUM GLUBIONATE
     Indication: Rheumatoid arthritis
     Route: 065
  49. CALCIUM GLUCONATE [Suspect]
     Active Substance: CALCIUM GLUCONATE
     Indication: Product used for unknown indication
     Route: 065
  50. CELEBREX [Suspect]
     Active Substance: CELECOXIB
     Indication: Arthritis
     Dosage: 2 DOSAGE FORM, QD
     Route: 048
  51. CELEBREX [Suspect]
     Active Substance: CELECOXIB
     Dosage: 2 DOSAGE FORM
     Route: 048
  52. CELEBREX [Suspect]
     Active Substance: CELECOXIB
     Dosage: UNK UNK, QD
     Route: 048
  53. CETIRIZINE HYDROCHLORIDE [Suspect]
     Active Substance: CETIRIZINE HYDROCHLORIDE
     Dosage: 25.0 MILLIGRAM
     Route: 065
  54. CETIRIZINE HYDROCHLORIDE [Suspect]
     Active Substance: CETIRIZINE HYDROCHLORIDE
     Indication: Off label use
     Route: 065
  55. CETIRIZINE HYDROCHLORIDE [Suspect]
     Active Substance: CETIRIZINE HYDROCHLORIDE
     Indication: Rheumatoid arthritis
     Route: 065
  56. CHLORAPREP [Suspect]
     Active Substance: CHLORHEXIDINE GLUCONATE\ISOPROPYL ALCOHOL
     Indication: Product used for unknown indication
     Route: 061
  57. CHLORHEXIDINE [Suspect]
     Active Substance: CHLORHEXIDINE
     Route: 002
  58. CHLORHEXIDINE [Suspect]
     Active Substance: CHLORHEXIDINE
     Indication: Product used for unknown indication
     Route: 048
  59. CHLORHEXIDINE [Suspect]
     Active Substance: CHLORHEXIDINE
     Route: 061
  60. CHLORHEXIDINE [Suspect]
     Active Substance: CHLORHEXIDINE
     Route: 061
  61. CHOLECALCIFEROL [Suspect]
     Active Substance: CHOLECALCIFEROL
     Indication: Product used for unknown indication
     Route: 065
  62. CIMZIA [Suspect]
     Active Substance: CERTOLIZUMAB PEGOL
     Route: 058
  63. CIMZIA [Suspect]
     Active Substance: CERTOLIZUMAB PEGOL
     Route: 058
  64. CIMZIA [Suspect]
     Active Substance: CERTOLIZUMAB PEGOL
     Indication: Rheumatoid arthritis
     Route: 058
  65. CIMZIA [Suspect]
     Active Substance: CERTOLIZUMAB PEGOL
     Route: 065
  66. CORTISONE ACETATE [Suspect]
     Active Substance: CORTISONE ACETATE
     Indication: Rheumatoid arthritis
     Route: 061
  67. CORTISONE ACETATE [Suspect]
     Active Substance: CORTISONE ACETATE
     Route: 061
  68. CORTISONE ACETATE [Suspect]
     Active Substance: CORTISONE ACETATE
     Route: 065
  69. CORTISONE ACETATE [Suspect]
     Active Substance: CORTISONE ACETATE
     Route: 048
  70. CORTISONE ACETATE [Suspect]
     Active Substance: CORTISONE ACETATE
     Route: 061
  71. CORTISONE ACETATE [Suspect]
     Active Substance: CORTISONE ACETATE
     Route: 065
  72. CORTISONE ACETATE [Suspect]
     Active Substance: CORTISONE ACETATE
     Route: 061
  73. CORTISONE ACETATE [Suspect]
     Active Substance: CORTISONE ACETATE
     Route: 065
  74. COSENTYX [Suspect]
     Active Substance: SECUKINUMAB
     Indication: Product used for unknown indication
     Route: 065
  75. DICLOFENAC POTASSIUM [Suspect]
     Active Substance: DICLOFENAC POTASSIUM
     Indication: Product used for unknown indication
     Route: 065
  76. DICLOFENAC SODIUM [Suspect]
     Active Substance: DICLOFENAC SODIUM
     Indication: Product used for unknown indication
     Route: 065
  77. DESOXIMETASONE [Suspect]
     Active Substance: DESOXIMETASONE
     Route: 061
  78. DESOXIMETASONE [Suspect]
     Active Substance: DESOXIMETASONE
     Indication: Rheumatoid arthritis
     Route: 048
  79. DESOXIMETASONE [Suspect]
     Active Substance: DESOXIMETASONE
     Indication: Product used for unknown indication
     Route: 065
  80. DICLOFENAC [Suspect]
     Active Substance: DICLOFENAC
     Indication: Product used for unknown indication
     Route: 065
  81. DIPHENHYDRAMINE [Suspect]
     Active Substance: DIPHENHYDRAMINE
     Indication: Product used for unknown indication
     Route: 065
  82. ERELZI [Suspect]
     Active Substance: ETANERCEPT-SZZS
     Indication: Rheumatoid arthritis
     Route: 065
  83. ENBREL [Suspect]
     Active Substance: ETANERCEPT
     Indication: Psoriatic arthropathy
     Dosage: 20 MG, QW
     Route: 058
  84. ENBREL [Suspect]
     Active Substance: ETANERCEPT
     Route: 058
  85. ENBREL [Suspect]
     Active Substance: ETANERCEPT
     Route: 059
  86. ENBREL [Suspect]
     Active Substance: ETANERCEPT
     Route: 059
  87. ENBREL [Suspect]
     Active Substance: ETANERCEPT
     Route: 065
  88. ENBREL [Suspect]
     Active Substance: ETANERCEPT
     Indication: Rheumatoid arthritis
     Dosage: 50 MG, QW
     Route: 058
  89. ENBREL [Suspect]
     Active Substance: ETANERCEPT
     Route: 059
  90. ENBREL [Suspect]
     Active Substance: ETANERCEPT
     Route: 059
  91. ENBREL [Suspect]
     Active Substance: ETANERCEPT
     Route: 065
  92. FOLIC ACID [Suspect]
     Active Substance: FOLIC ACID
     Route: 065
  93. FOLIC ACID [Suspect]
     Active Substance: FOLIC ACID
     Route: 065
  94. FOLIC ACID [Suspect]
     Active Substance: FOLIC ACID
     Indication: Rheumatoid arthritis
     Route: 065
  95. FOLIC ACID [Suspect]
     Active Substance: FOLIC ACID
     Route: 065
  96. FOLIC ACID [Suspect]
     Active Substance: FOLIC ACID
     Route: 065
  97. FOLIC ACID [Suspect]
     Active Substance: FOLIC ACID
     Route: 065
  98. FOLIC ACID [Suspect]
     Active Substance: FOLIC ACID
     Route: 065
  99. FOSAMAX [Suspect]
     Active Substance: ALENDRONATE SODIUM
     Route: 065
  100. FOSAMAX [Suspect]
     Active Substance: ALENDRONATE SODIUM
     Route: 016
  101. FOSAMAX [Suspect]
     Active Substance: ALENDRONATE SODIUM
     Indication: Product used for unknown indication
     Route: 041
  102. FOSAMAX [Suspect]
     Active Substance: ALENDRONATE SODIUM
     Route: 048
  103. HUMIRA [Suspect]
     Active Substance: ADALIMUMAB
     Route: 058
  104. HUMIRA [Suspect]
     Active Substance: ADALIMUMAB
     Dosage: 40 MG, QD
     Route: 058
  105. HUMIRA [Suspect]
     Active Substance: ADALIMUMAB
     Indication: Psoriatic arthropathy
     Route: 058
  106. HUMIRA [Suspect]
     Active Substance: ADALIMUMAB
     Indication: Rheumatoid arthritis
     Route: 058
  107. HUMIRA [Suspect]
     Active Substance: ADALIMUMAB
     Route: 065
  108. HUMIRA [Suspect]
     Active Substance: ADALIMUMAB
     Route: 065
  109. HUMIRA [Suspect]
     Active Substance: ADALIMUMAB
     Dosage: 400 MG, QD
     Route: 058
  110. HUMIRA [Suspect]
     Active Substance: ADALIMUMAB
     Route: 058
  111. HYDROXYCHLOROQUINE SULFATE [Suspect]
     Active Substance: HYDROXYCHLOROQUINE SULFATE
     Indication: Product used for unknown indication
     Route: 048
  112. HYDROXYCHLOROQUINE SULFATE [Suspect]
     Active Substance: HYDROXYCHLOROQUINE SULFATE
     Route: 065
  113. IMURAN [Suspect]
     Active Substance: AZATHIOPRINE
     Indication: Product used for unknown indication
     Route: 065
  114. INFLIXIMAB [Suspect]
     Active Substance: INFLIXIMAB
     Route: 065
  115. INFLIXIMAB [Suspect]
     Active Substance: INFLIXIMAB
     Route: 042
  116. INFLIXIMAB [Suspect]
     Active Substance: INFLIXIMAB
     Indication: Rheumatoid arthritis
     Route: 065
  117. BUPIVACAINE HYDROCHLORIDE [Suspect]
     Active Substance: BUPIVACAINE HYDROCHLORIDE
     Indication: Rheumatoid arthritis
     Route: 065
  118. METHOTREXATE [Suspect]
     Active Substance: METHOTREXATE
     Route: 048
  119. METHOTREXATE [Suspect]
     Active Substance: METHOTREXATE
     Indication: Rheumatoid arthritis
     Route: 048
  120. METHOTREXATE [Suspect]
     Active Substance: METHOTREXATE
     Indication: Product used for unknown indication
     Route: 065
  121. NAPROXEN SODIUM [Suspect]
     Active Substance: NAPROXEN SODIUM
     Indication: Rheumatoid arthritis
     Route: 065
  122. ORENCIA [Suspect]
     Active Substance: ABATACEPT
     Indication: Product used for unknown indication
     Route: 065
  123. PREGABALIN [Suspect]
     Active Substance: PREGABALIN
     Indication: Product used for unknown indication
     Route: 065
  124. PHTHALYLSULFATHIAZOLE [Suspect]
     Active Substance: PHTHALYLSULFATHIAZOLE
     Indication: Product used for unknown indication
     Route: 065
  125. PHTHALYLSULFATHIAZOLE [Suspect]
     Active Substance: PHTHALYLSULFATHIAZOLE
     Route: 048
  126. PHTHALYLSULFATHIAZOLE [Suspect]
     Active Substance: PHTHALYLSULFATHIAZOLE
     Route: 048
  127. PHTHALYLSULFATHIAZOLE [Suspect]
     Active Substance: PHTHALYLSULFATHIAZOLE
     Route: 048
  128. PLAQUENIL [Suspect]
     Active Substance: HYDROXYCHLOROQUINE SULFATE
     Route: 048
  129. PLAQUENIL [Suspect]
     Active Substance: HYDROXYCHLOROQUINE SULFATE
     Indication: Rheumatoid arthritis
     Route: 065
  130. PREDNISONE [Suspect]
     Active Substance: PREDNISONE
     Route: 048
  131. PREDNISONE [Suspect]
     Active Substance: PREDNISONE
     Indication: Product used for unknown indication
     Route: 048
  132. PSEUDOEPHEDRINE HYDROCHLORIDE [Suspect]
     Active Substance: PSEUDOEPHEDRINE HYDROCHLORIDE
     Indication: Product used for unknown indication
     Route: 065
  133. RITUXIMAB [Suspect]
     Active Substance: RITUXIMAB
     Indication: Product used for unknown indication
     Route: 058
  134. CETIRIZINE HYDROCHLORIDE [Suspect]
     Active Substance: CETIRIZINE HYDROCHLORIDE
     Indication: Rheumatoid arthritis
     Route: 065
  135. REMICADE [Suspect]
     Active Substance: INFLIXIMAB
     Route: 042
  136. REMICADE [Suspect]
     Active Substance: INFLIXIMAB
     Route: 042
  137. REMICADE [Suspect]
     Active Substance: INFLIXIMAB
     Route: 042
  138. REMICADE [Suspect]
     Active Substance: INFLIXIMAB
     Indication: Rheumatoid arthritis
     Route: 042
  139. REMICADE [Suspect]
     Active Substance: INFLIXIMAB
     Route: 042
  140. REMICADE [Suspect]
     Active Substance: INFLIXIMAB
     Route: 058
  141. RITUXIMAB [Suspect]
     Active Substance: RITUXIMAB
     Indication: Rheumatoid arthritis
     Route: 042
  142. RITUXIMAB [Suspect]
     Active Substance: RITUXIMAB
     Route: 042
  143. RITUXIMAB [Suspect]
     Active Substance: RITUXIMAB
     Route: 042
  144. RITUXIMAB [Suspect]
     Active Substance: RITUXIMAB
     Route: 058
  145. CANDESARTAN CILEXETIL [Suspect]
     Active Substance: CANDESARTAN CILEXETIL
     Indication: Migraine
     Route: 048
  146. SIMPONI [Suspect]
     Active Substance: GOLIMUMAB
     Indication: Rheumatoid arthritis
     Route: 059
  147. SIMPONI [Suspect]
     Active Substance: GOLIMUMAB
     Route: 042
  148. SIMPONI [Suspect]
     Active Substance: GOLIMUMAB
     Route: 052
  149. SIMPONI [Suspect]
     Active Substance: GOLIMUMAB
     Route: 058
  150. SULFASALAZINE [Suspect]
     Active Substance: SULFASALAZINE
     Dosage: 1 G
     Route: 048
  151. SULFASALAZINE [Suspect]
     Active Substance: SULFASALAZINE
     Route: 058
  152. SULFASALAZINE [Suspect]
     Active Substance: SULFASALAZINE
     Dosage: 1 DF, BID
     Route: 065
  153. SULFASALAZINE [Suspect]
     Active Substance: SULFASALAZINE
     Route: 065
  154. SULFASALAZINE [Suspect]
     Active Substance: SULFASALAZINE
     Route: 048
  155. SULFASALAZINE [Suspect]
     Active Substance: SULFASALAZINE
     Indication: Rheumatoid arthritis
     Route: 048
  156. SULFASALAZINE [Suspect]
     Active Substance: SULFASALAZINE
     Dosage: 2 G, QD
     Route: 065
  157. SULFASALAZINE [Suspect]
     Active Substance: SULFASALAZINE
     Route: 048
  158. SULFASALAZINE [Suspect]
     Active Substance: SULFASALAZINE
     Dosage: 300 MG, QD
     Route: 065
  159. SULFASALAZINE [Suspect]
     Active Substance: SULFASALAZINE
     Route: 048
  160. SULFASALAZINE [Suspect]
     Active Substance: SULFASALAZINE
     Route: 065
  161. TOFACITINIB [Suspect]
     Active Substance: TOFACITINIB
     Indication: Rheumatoid arthritis
     Route: 065
  162. ACETAMINOPHEN [Concomitant]
     Active Substance: ACETAMINOPHEN
     Indication: Product used for unknown indication
     Route: 065
  163. ATIVAN [Concomitant]
     Active Substance: LORAZEPAM
     Indication: Product used for unknown indication
     Route: 065
  164. CODEINE [Concomitant]
     Active Substance: CODEINE
     Indication: Product used for unknown indication
     Route: 065

REACTIONS (126)
  - Alopecia [Fatal]
  - Amnesia [Fatal]
  - Anxiety [Fatal]
  - Asthenia [Fatal]
  - Asthma [Fatal]
  - Blood cholesterol increased [Fatal]
  - Breast cancer stage II [Fatal]
  - Condition aggravated [Fatal]
  - Confusional state [Fatal]
  - Contusion [Fatal]
  - Decreased appetite [Fatal]
  - Deep vein thrombosis postoperative [Fatal]
  - Delirium [Fatal]
  - Depression [Fatal]
  - Discomfort [Fatal]
  - Dislocation of vertebra [Fatal]
  - Drug hypersensitivity [Fatal]
  - Dry mouth [Fatal]
  - Duodenal ulcer perforation [Fatal]
  - Dyspepsia [Fatal]
  - Dyspnoea [Fatal]
  - Facet joint syndrome [Fatal]
  - Fatigue [Fatal]
  - Fibromyalgia [Fatal]
  - Folliculitis [Fatal]
  - Gait disturbance [Fatal]
  - Glossodynia [Fatal]
  - Grip strength decreased [Fatal]
  - Hand deformity [Fatal]
  - Headache [Fatal]
  - Helicobacter infection [Fatal]
  - Hip arthroplasty [Fatal]
  - Hypertension [Fatal]
  - Hypoaesthesia [Fatal]
  - Impaired healing [Fatal]
  - Infection [Fatal]
  - Inflammation [Fatal]
  - Infusion related reaction [Fatal]
  - Injury [Fatal]
  - Intentional product use issue [Fatal]
  - Irritable bowel syndrome [Fatal]
  - Knee arthroplasty [Fatal]
  - Lip dry [Fatal]
  - Liver injury [Fatal]
  - Lower limb fracture [Fatal]
  - Lower respiratory tract infection [Fatal]
  - Lung disorder [Fatal]
  - Lupus vulgaris [Fatal]
  - Malaise [Fatal]
  - Migraine [Fatal]
  - Muscle injury [Fatal]
  - Muscle spasms [Fatal]
  - Muscular weakness [Fatal]
  - Musculoskeletal pain [Fatal]
  - Nasopharyngitis [Fatal]
  - Night sweats [Fatal]
  - Obesity [Fatal]
  - Osteoarthritis [Fatal]
  - Pain [Fatal]
  - Paraesthesia [Fatal]
  - Pemphigus [Fatal]
  - Pericarditis [Fatal]
  - Peripheral venous disease [Fatal]
  - Product use issue [Fatal]
  - Psoriatic arthropathy [Fatal]
  - Pyrexia [Fatal]
  - Rheumatic fever [Fatal]
  - Rheumatoid arthritis [Fatal]
  - Road traffic accident [Fatal]
  - Sciatica [Fatal]
  - Sinusitis [Fatal]
  - Sleep disorder due to general medical condition, insomnia type [Fatal]
  - Stomatitis [Fatal]
  - Swelling [Fatal]
  - Systemic lupus erythematosus [Fatal]
  - Type 2 diabetes mellitus [Fatal]
  - Urticaria [Fatal]
  - Weight decreased [Fatal]
  - Weight increased [Fatal]
  - Wound infection [Fatal]
  - Maternal exposure during pregnancy [Fatal]
  - Off label use [Fatal]
  - Contraindicated product administered [Fatal]
  - Medication error [Fatal]
  - Drug ineffective [Fatal]
  - Abdominal discomfort [Fatal]
  - Blister [Fatal]
  - Breast cancer stage III [Fatal]
  - Blepharospasm [Fatal]
  - Abdominal pain upper [Fatal]
  - Anti-cyclic citrullinated peptide antibody positive [Fatal]
  - Bursitis [Fatal]
  - Arthralgia [Fatal]
  - Arthropathy [Fatal]
  - C-reactive protein increased [Fatal]
  - Diarrhoea [Fatal]
  - Dizziness [Fatal]
  - Epilepsy [Fatal]
  - Gastrooesophageal reflux disease [Fatal]
  - General physical health deterioration [Fatal]
  - Hepatic enzyme increased [Fatal]
  - Peripheral swelling [Fatal]
  - Abdominal pain [Unknown]
  - Autoimmune disorder [Unknown]
  - Vomiting [Unknown]
  - Chest pain [Unknown]
  - Drug intolerance [Unknown]
  - Gait inability [Unknown]
  - Gastrointestinal disorder [Unknown]
  - Hypercholesterolaemia [Unknown]
  - Hypersensitivity [Unknown]
  - Ill-defined disorder [Unknown]
  - Joint range of motion decreased [Unknown]
  - Joint swelling [Unknown]
  - Liver disorder [Unknown]
  - Mobility decreased [Unknown]
  - Musculoskeletal stiffness [Unknown]
  - Oedema [Unknown]
  - Oedema peripheral [Unknown]
  - Rash [Unknown]
  - Pruritus [Unknown]
  - Respiratory tract infection [Unknown]
  - Rheumatoid factor positive [Unknown]
  - Swollen joint count increased [Unknown]
  - Synovitis [Unknown]
  - Product use in unapproved indication [Unknown]
